FAERS Safety Report 4323634-1 (Version None)
Quarter: 2004Q1

REPORT INFORMATION
  Report Type: 
  Country: None (occurrence: None)
  Receive Date: 20040326
  Receipt Date: 20040220
  Transmission Date: 20041129
  Serious: Yes (Hospitalization)
  Sender: FDA-Public Use
  Company Number: PHBS2004BE02545

PATIENT
  Age: 66 Year
  Sex: Female

DRUGS (6)
  1. LEPONEX [Suspect]
     Indication: INSOMNIA
     Route: 065
     Dates: start: 20030201
  2. LEPONEX [Suspect]
     Dosage: 100 MG/D
     Route: 065
     Dates: start: 20030501, end: 20040210
  3. LEPONEX [Suspect]
     Dosage: 50 MG, QHS
     Route: 065
  4. XANAX [Concomitant]
     Route: 065
  5. RIVOTRIL [Concomitant]
     Route: 065
  6. ANTIHYPERTENSIVES [Concomitant]
     Route: 065

REACTIONS (15)
  - ABDOMINAL PAIN [None]
  - BLOOD CORTISOL INCREASED [None]
  - DEPRESSED LEVEL OF CONSCIOUSNESS [None]
  - DIARRHOEA [None]
  - DRUG WITHDRAWAL SYNDROME [None]
  - DYSKINESIA [None]
  - EXTRAPYRAMIDAL DISORDER [None]
  - GASTROINTESTINAL DISORDER [None]
  - GASTROINTESTINAL INFECTION [None]
  - GENERAL PHYSICAL HEALTH DETERIORATION [None]
  - INSOMNIA [None]
  - PYREXIA [None]
  - TARDIVE DYSKINESIA [None]
  - TREMOR [None]
  - VOMITING [None]
